FAERS Safety Report 9342845 (Version 2)
Quarter: 2013Q2

REPORT INFORMATION
  Report Type: Spontaneous
  Country: US (occurrence: None)
  Receive Date: 20130607
  Receipt Date: 20130612
  Transmission Date: 20140414
  Serious: Yes (Other)
  Sender: FDA-Public Use
  Company Number: ENT 2013-0099

PATIENT
  Age: 70 Year
  Sex: Female

DRUGS (4)
  1. ENTACAPONE [Suspect]
     Indication: PARKINSON^S DISEASE
     Dosage: CONSISTENT DOSE FOR 10 YEARS, UNKNOWN
  2. LEVODOPA-CARBIDOPA [Suspect]
     Indication: PARKINSON^S DISEASE
     Dosage: CONSISTENT DOSE FOR 10 YEARS, UNKNOWN
  3. PRAMIPEXOLE (PRAMIPEXOLE) [Suspect]
  4. DULOXETINE [Concomitant]

REACTIONS (7)
  - Depressed mood [None]
  - Anhedonia [None]
  - Asthenia [None]
  - Morbid thoughts [None]
  - Fall [None]
  - Abnormal behaviour [None]
  - Compulsive handwashing [None]
